FAERS Safety Report 10419361 (Version 2)
Quarter: 2014Q4

REPORT INFORMATION
  Report Type: Spontaneous
  Country: US (occurrence: US)
  Receive Date: 20140829
  Receipt Date: 20141113
  Transmission Date: 20150528
  Serious: No
  Sender: FDA-Public Use
  Company Number: US-009507513-1408USA011995

PATIENT
  Age: 26 Year
  Sex: Female
  Weight: 117.91 kg

DRUGS (2)
  1. NEXPLANON [Suspect]
     Active Substance: ETONOGESTREL
     Indication: CONTRACEPTION
     Dosage: 68MG/ ONE ROD INSERTED EVERY THREE YEARS
     Route: 059
     Dates: start: 20140530, end: 20140819
  2. NEXPLANON [Suspect]
     Active Substance: ETONOGESTREL
     Dosage: 68MG/ ONE ROD INSERTED EVERY THREE YEARS
     Route: 059
     Dates: start: 20140819

REACTIONS (2)
  - Device breakage [Recovered/Resolved]
  - No adverse event [Unknown]

NARRATIVE: CASE EVENT DATE: 201408
